FAERS Safety Report 8981832 (Version 2)
Quarter: 2013Q1

REPORT INFORMATION
  Report Type: Report from Study
  Country: DE (occurrence: DE)
  Receive Date: 20121223
  Receipt Date: 20130221
  Transmission Date: 20140127
  Serious: Yes (Hospitalization)
  Sender: FDA-Public Use
  Company Number: PHHO2012DE017406

PATIENT
  Age: 24 Year
  Sex: Male
  Weight: 77 kg

DRUGS (6)
  1. BLINDED AFINITOR [Suspect]
     Indication: TUBEROUS SCLEROSIS
     Dosage: CODE NOT BROKEN
     Dates: start: 20090730, end: 20121021
  2. BLINDED NO TREATMENT RECEIVED [Suspect]
     Indication: TUBEROUS SCLEROSIS
     Dosage: CODE NOT BROKEN
     Dates: start: 20090730, end: 20121021
  3. BLINDED PLACEBO [Suspect]
     Indication: TUBEROUS SCLEROSIS
     Dosage: CODE NOT BROKEN
     Dates: start: 20090730, end: 20121021
  4. BLINDED AFINITOR [Suspect]
     Dosage: CODE NOT BROKEN
     Dates: start: 20130122
  5. BLINDED NO TREATMENT RECEIVED [Suspect]
     Dosage: CODE NOT BROKEN
     Dates: start: 20130122
  6. BLINDED PLACEBO [Suspect]
     Dosage: CODE NOT BROKEN
     Dates: start: 20130122

REACTIONS (1)
  - Abdominal hernia [Recovered/Resolved]
